FAERS Safety Report 5802487-6 (Version None)
Quarter: 2008Q2

REPORT INFORMATION
  Report Type: 
  Country: None (occurrence: None)
  Receive Date: 20080630
  Receipt Date: 20070920
  Transmission Date: 20081010
  Serious: Yes (Other)
  Sender: FDA-Public Use
  Company Number: 161905USA

PATIENT
  Age: 48 Year
  Sex: Female

DRUGS (2)
  1. ATENOLOL [Suspect]
  2. OLMESARTAN MEDOXOMIL [Suspect]

REACTIONS (3)
  - OEDEMA MOUTH [None]
  - PHARYNGEAL OEDEMA [None]
  - SWELLING FACE [None]
